FAERS Safety Report 9386120 (Version 1)
Quarter: 2013Q3

REPORT INFORMATION
  Report Type: Spontaneous
  Country: US (occurrence: US)
  Receive Date: 20130707
  Receipt Date: 20130707
  Transmission Date: 20140515
  Serious: No
  Sender: FDA-Public Use
  Company Number: US-ALLERGAN-1303150US

PATIENT
  Sex: Female

DRUGS (2)
  1. LUMIGAN? 0.01% [Suspect]
     Indication: INTRAOCULAR PRESSURE INCREASED
     Dosage: 2 GTT, QHS
     Route: 047
     Dates: start: 20130225, end: 20130227
  2. SYNTHROID [Concomitant]
     Indication: HYPOTHYROIDISM

REACTIONS (6)
  - Lacrimation increased [Recovered/Resolved]
  - Skin fissures [Recovered/Resolved]
  - Scleral hyperaemia [Recovered/Resolved]
  - Erythema [Recovered/Resolved]
  - Eye pruritus [Recovered/Resolved]
  - Eyelids pruritus [Recovered/Resolved]
